FAERS Safety Report 17647401 (Version 1)
Quarter: 2020Q2

REPORT INFORMATION
  Report Type: Spontaneous
  Country: IE (occurrence: IE)
  Receive Date: 20200408
  Receipt Date: 20200408
  Transmission Date: 20200713
  Serious: Yes (Hospitalization, Other)
  Sender: FDA-Public Use
  Company Number: IE-MYLANLABS-2020M1035007

PATIENT
  Sex: Male

DRUGS (1)
  1. CLOZARIL [Suspect]
     Active Substance: CLOZAPINE
     Indication: SCHIZOPHRENIA
     Dosage: UNK
     Route: 048
     Dates: start: 20120401

REACTIONS (6)
  - Investigation abnormal [Unknown]
  - Aggression [Unknown]
  - Social avoidant behaviour [Unknown]
  - Multiple-drug resistance [Unknown]
  - Agitation [Unknown]
  - Irritability [Unknown]
